FAERS Safety Report 17922898 (Version 4)
Quarter: 2021Q1

REPORT INFORMATION
  Report Type: Spontaneous
  Country: US (occurrence: US)
  Receive Date: 20200622
  Receipt Date: 20210318
  Transmission Date: 20210419
  Serious: Yes (Other)
  Sender: FDA-Public Use
  Company Number: US-PFIZER INC-2020238248

PATIENT
  Age: 78 Year
  Sex: Female
  Weight: 58.51 kg

DRUGS (10)
  1. SERTRALINE [Concomitant]
     Active Substance: SERTRALINE HYDROCHLORIDE
     Indication: ANXIETY
     Dosage: 50 MG, DAILY (1 TABLET BY MOUTH DAILY)
     Route: 048
  2. FRAGMIN [Suspect]
     Active Substance: DALTEPARIN SODIUM
     Dosage: UNK
     Dates: start: 20200606, end: 20200610
  3. WARFARIN [Concomitant]
     Active Substance: WARFARIN
     Dosage: 6 MG, DAILY (1 TABLET BY MOUTH DAILY  )
     Route: 048
     Dates: start: 20200615
  4. AVAPRO [Concomitant]
     Active Substance: IRBESARTAN
     Indication: HYPERTENSION
     Dosage: 150 MG, DAILY (1 TABLET BY MOUTH DAILY )
     Route: 048
  5. METOPROLOL. [Concomitant]
     Active Substance: METOPROLOL
     Indication: BLOOD PRESSURE ABNORMAL
     Dosage: 25 MG, DAILY (1 TABLET BY MOUTH DAILY  )
     Route: 048
  6. FRAGMIN [Suspect]
     Active Substance: DALTEPARIN SODIUM
     Dosage: UNK
     Dates: start: 20200613, end: 20200618
  7. SYNTHROID [Concomitant]
     Active Substance: LEVOTHYROXINE SODIUM
     Indication: THYROID DISORDER
     Dosage: 88 UG, DAILY (1 TABLET BY MOUTH DAILY  )
     Route: 048
  8. WARFARIN [Concomitant]
     Active Substance: WARFARIN
     Indication: BLOOD DISORDER
     Dosage: 9 MG
     Dates: start: 20200613
  9. VITAMIN D [COLECALCIFEROL] [Concomitant]
     Active Substance: CHOLECALCIFEROL
     Indication: BONE DISORDER
     Dosage: 1000 MG, DAILY
     Route: 048
  10. REPATHA [Concomitant]
     Active Substance: EVOLOCUMAB
     Indication: BLOOD CHOLESTEROL ABNORMAL
     Dosage: 140 MG (1 INJECTION EVERY 2 WEEKS  )
     Dates: start: 2018

REACTIONS (2)
  - Asthenia [Not Recovered/Not Resolved]
  - Carpal tunnel syndrome [Unknown]
